FAERS Safety Report 4809911-6 (Version None)
Quarter: 2005Q4

REPORT INFORMATION
  Report Type: 
  Country: None (occurrence: None)
  Receive Date: 20051024
  Receipt Date: 20051014
  Transmission Date: 20060501
  Serious: Yes (Other)
  Sender: FDA-Public Use
  Company Number: 2005143107

PATIENT
  Age: 47 Year
  Sex: Male

DRUGS (1)
  1. ZOLOFT [Suspect]
     Indication: ILL-DEFINED DISORDER
     Dosage: 100 MG (100 MG, 1 IN 1 D)
     Dates: start: 20040701

REACTIONS (5)
  - DYSPNOEA [None]
  - HYPERHIDROSIS [None]
  - NIGHT SWEATS [None]
  - SNORING [None]
  - WEIGHT DECREASED [None]
